FAERS Safety Report 21031267 (Version 1)
Quarter: 2022Q3

REPORT INFORMATION
  Report Type: Spontaneous
  Country: CN (occurrence: CN)
  Receive Date: 20220701
  Receipt Date: 20220701
  Transmission Date: 20221026
  Serious: Yes (Other)
  Sender: FDA-Public Use
  Company Number: CN-AMGEN-CHNSP2022110400

PATIENT
  Age: 22 Year
  Sex: Male

DRUGS (4)
  1. FILGRASTIM [Suspect]
     Active Substance: FILGRASTIM
     Indication: Prophylaxis
     Dosage: 5 MICROGRAM/KILOGRAM D1-7
     Route: 065
  2. VENETOCLAX [Concomitant]
     Active Substance: VENETOCLAX
     Indication: Acute promyelocytic leukaemia
     Dosage: 100 MILLIGRAM D1
  3. CYTARABINE [Concomitant]
     Active Substance: CYTARABINE
     Indication: Acute promyelocytic leukaemia
  4. ACLARUBICIN [Concomitant]
     Active Substance: ACLARUBICIN
     Indication: Acute promyelocytic leukaemia

REACTIONS (1)
  - Neutropenia [Unknown]
